FAERS Safety Report 12156179 (Version 1)
Quarter: 2016Q1

REPORT INFORMATION
  Report Type: Spontaneous
  Country: US (occurrence: US)
  Receive Date: 20160307
  Receipt Date: 20160307
  Transmission Date: 20160526
  Serious: No
  Sender: FDA-Public Use
  Company Number: US-ELI_LILLY_AND_COMPANY-US201602009541

PATIENT
  Age: 43 Year
  Sex: Female

DRUGS (15)
  1. COMPLERA [Concomitant]
     Active Substance: EMTRICITABINE\RILPIVIRINE HYDROCHLORIDE\TENOFOVIR DISOPROXIL FUMARATE
     Dosage: UNK, UNKNOWN
     Route: 065
  2. ADVAIR HFA [Concomitant]
     Active Substance: FLUTICASONE PROPIONATE\SALMETEROL XINAFOATE
     Dosage: UNK, UNKNOWN
     Route: 065
  3. PREZISTA [Concomitant]
     Active Substance: DARUNAVIR ETHANOLATE
     Dosage: UNK, UNKNOWN
     Route: 065
  4. TYVASO [Suspect]
     Active Substance: TREPROSTINIL
     Indication: PRODUCT USED FOR UNKNOWN INDICATION
     Dosage: UNK, UNKNOWN
     Route: 065
  5. ISENTRESS [Concomitant]
     Active Substance: RALTEGRAVIR POTASSIUM
     Dosage: UNK, UNKNOWN
     Route: 065
  6. VIREAD [Concomitant]
     Active Substance: TENOFOVIR DISOPROXIL FUMARATE
     Dosage: UNK, UNKNOWN
     Route: 065
  7. ALDACTONE [Concomitant]
     Active Substance: SPIRONOLACTONE
     Dosage: UNK, UNKNOWN
     Route: 065
  8. NORVIR [Concomitant]
     Active Substance: RITONAVIR
     Dosage: UNK, UNKNOWN
     Route: 065
  9. EMTRIVA [Concomitant]
     Active Substance: EMTRICITABINE
     Dosage: UNK, UNKNOWN
     Route: 065
  10. AMBRISENTAN [Suspect]
     Active Substance: AMBRISENTAN
     Indication: PULMONARY HYPERTENSION
     Dosage: 10 MG, QD
     Route: 065
     Dates: start: 20120904
  11. PREVACID [Concomitant]
     Active Substance: LANSOPRAZOLE
     Dosage: UNK, UNKNOWN
     Route: 065
  12. FUROSEMIDE. [Concomitant]
     Active Substance: FUROSEMIDE
     Dosage: UNK, UNKNOWN
     Route: 065
  13. SPIRIVA [Concomitant]
     Active Substance: TIOTROPIUM BROMIDE MONOHYDRATE
     Dosage: UNK, UNKNOWN
  14. ADCIRCA [Suspect]
     Active Substance: TADALAFIL
     Indication: PRODUCT USED FOR UNKNOWN INDICATION
     Dosage: UNK, UNKNOWN
     Route: 065
  15. ONDANSETRON [Concomitant]
     Active Substance: ONDANSETRON
     Dosage: UNK, UNKNOWN
     Route: 065

REACTIONS (5)
  - Oedema peripheral [Unknown]
  - Fatigue [Unknown]
  - Dyspnoea [Unknown]
  - Chest pain [Unknown]
  - Dizziness [Unknown]

NARRATIVE: CASE EVENT DATE: 20160210
